FAERS Safety Report 7605521-6 (Version None)
Quarter: 2011Q3

REPORT INFORMATION
  Report Type: 
  Country: None (occurrence: None)
  Receive Date: 20110713
  Receipt Date: 20110708
  Transmission Date: 20111222
  Serious: No
  Sender: FDA-Public Use
  Company Number: US-PFIZER INC-2011154610

PATIENT
  Sex: Female
  Weight: 74.83 kg

DRUGS (5)
  1. MULTI-VITAMINS [Concomitant]
     Dosage: UNK
  2. VITAMIN B [Concomitant]
     Dosage: UNK
  3. TOVIAZ [Suspect]
     Indication: HYPERTONIC BLADDER
     Dosage: 4 MG, 1X/DAY
     Route: 048
     Dates: start: 19980101
  4. VITAMIN B-12 [Concomitant]
     Dosage: UNK
  5. BETASERON [Concomitant]
     Indication: MULTIPLE SCLEROSIS
     Dosage: UNK, 1X/DAY

REACTIONS (1)
  - NOCTURIA [None]
